FAERS Safety Report 16050213 (Version 2)
Quarter: 2019Q2

REPORT INFORMATION
  Report Type: Spontaneous
  Country: US (occurrence: US)
  Receive Date: 20190308
  Receipt Date: 20190404
  Transmission Date: 20190711
  Serious: No
  Sender: FDA-Public Use
  Company Number: US-ASTRAZENECA-2019SE24353

PATIENT
  Sex: Female
  Weight: 52.2 kg

DRUGS (2)
  1. TUDORZA PRESSAIR [Suspect]
     Active Substance: ACLIDINIUM BROMIDE
     Indication: CHRONIC OBSTRUCTIVE PULMONARY DISEASE
     Route: 055
     Dates: start: 201901
  2. PROVENTIL [Concomitant]
     Active Substance: ALBUTEROL
     Dosage: PUFFS THREE TIMES PER DAY

REACTIONS (4)
  - Device malfunction [Unknown]
  - Intentional device misuse [Unknown]
  - Malaise [Unknown]
  - Product dose omission [Not Recovered/Not Resolved]
